FAERS Safety Report 12739134 (Version 3)
Quarter: 2016Q3

REPORT INFORMATION
  Report Type: Spontaneous
  Country: US (occurrence: US)
  Receive Date: 20160912
  Receipt Date: 20160922
  Transmission Date: 20161109
  Serious: Yes (Hospitalization, Other)
  Sender: FDA-Public Use
  Company Number: US-UNITED THERAPEUTICS-UNT-2016-014147

PATIENT
  Sex: Male
  Weight: 63.49 kg

DRUGS (3)
  1. REMODULIN [Suspect]
     Active Substance: TREPROSTINIL
     Indication: PULMONARY ARTERIAL HYPERTENSION
     Dosage: 0.037 ?G/KG, CONTINUING
     Route: 058
     Dates: start: 20160130
  2. XARELTO [Concomitant]
     Active Substance: RIVAROXABAN
     Indication: PRODUCT USED FOR UNKNOWN INDICATION
  3. REMODULIN [Suspect]
     Active Substance: TREPROSTINIL
     Dosage: 0.045 ?G/KG, CONTINUING
     Route: 058

REACTIONS (8)
  - Constipation [Recovered/Resolved]
  - Abdominal pain [Unknown]
  - Infusion site pain [Unknown]
  - Inflammation [Unknown]
  - Kidney infection [Unknown]
  - Back pain [Unknown]
  - Diarrhoea [Unknown]
  - Nephropathy toxic [Unknown]

NARRATIVE: CASE EVENT DATE: 2016
